FAERS Safety Report 11810553 (Version 1)
Quarter: 2015Q4

REPORT INFORMATION
  Report Type: Spontaneous
  Country: FR (occurrence: FR)
  Receive Date: 20151208
  Receipt Date: 20151208
  Transmission Date: 20160305
  Serious: Yes (Death, Hospitalization)
  Sender: FDA-Public Use
  Company Number: FR-TEVA-613649ISR

PATIENT
  Age: 65 Year
  Sex: Male
  Weight: 70 kg

DRUGS (11)
  1. ONDANSETRON ACCORD [Concomitant]
     Active Substance: ONDANSETRON
     Route: 042
     Dates: start: 20150402, end: 20150402
  2. CISPLATINE ACCORD [Suspect]
     Active Substance: CISPLATIN
     Dosage: COURSE 1 DAY 1
     Route: 041
     Dates: start: 20150402, end: 20150402
  3. ETOPOSIDE TEVA [Suspect]
     Active Substance: ETOPOSIDE
     Dosage: COURSE 1 DAY 1 TO DAY 3
     Route: 041
     Dates: start: 20150402, end: 20150404
  4. BIONOLYTE G5 [Concomitant]
     Dosage: 1000 ML DAILY; COURSE 1 DAY 1
     Route: 041
     Dates: start: 20150402, end: 20150402
  5. CHLORURE DE SODIUM PROAMP 0,9 % [Concomitant]
     Dosage: COURSE 1 DAY 1
     Route: 041
     Dates: start: 20150402, end: 20150402
  6. ZOPHREN [Concomitant]
     Active Substance: ONDANSETRON
     Dosage: COURSE 1 FROM DAY 1 TO DAY 3
     Route: 048
     Dates: start: 20150402, end: 20150404
  7. SOLUPRED [Concomitant]
     Active Substance: PREDNISOLONE
     Dosage: 40 MILLIGRAM DAILY; COURSE 1  FROM DAY 2 TO DAY 3
     Route: 048
     Dates: start: 20150403, end: 20150404
  8. LANTUS [Concomitant]
     Active Substance: INSULIN GLARGINE
     Dosage: 20 IU (INTERNATIONAL UNIT) DAILY; IN THE EVENING
     Route: 058
     Dates: start: 20150311
  9. MANNITOL B. BRAUN 10 POUR CENT [Suspect]
     Active Substance: MANNITOL
     Dosage: COURSE 1 DAY 1
     Route: 041
     Dates: start: 20150402, end: 20150402
  10. HUMALOG [Concomitant]
     Active Substance: INSULIN LISPRO
     Dosage: 19 IU IN THE MORNING, 26 IU AT NOON AND 29 IU AT NIGHT
     Route: 058
     Dates: start: 20150311
  11. METHYLPREDNISOLONE MYLAN [Concomitant]
     Active Substance: METHYLPREDNISOLONE
     Dosage: COURSE 1 DAY 1
     Route: 042
     Dates: start: 20150402, end: 20150402

REACTIONS (7)
  - Staphylococcus test positive [None]
  - Pancytopenia [Unknown]
  - C-reactive protein increased [Unknown]
  - Malignant neoplasm progression [None]
  - Febrile bone marrow aplasia [Recovered/Resolved]
  - Opportunistic infection [Recovered/Resolved]
  - Lung carcinoma cell type unspecified stage IV [None]

NARRATIVE: CASE EVENT DATE: 201504
